FAERS Safety Report 7394184-3 (Version None)
Quarter: 2011Q1

REPORT INFORMATION
  Report Type: 
  Country: None (occurrence: None)
  Receive Date: 20110325
  Receipt Date: 20110311
  Transmission Date: 20110831
  Serious: Yes (Death, Hospitalization)
  Sender: FDA-Public Use
  Company Number: 2011001314

PATIENT
  Age: 49 Year
  Sex: Female

DRUGS (2)
  1. GDC-0449(CAPSULES) [Suspect]
     Indication: NEOPLASM
     Dosage: (150 MG,QDX2),ORAL
     Route: 048
     Dates: start: 20090706
  2. ERLOTINIB (ERLOTINIB) (TABLET) (ERLOTINIB) [Suspect]
     Indication: NEOPLASM
     Dosage: (75 MG,QD),ORAL
     Route: 048
     Dates: start: 20090706

REACTIONS (3)
  - PAIN [None]
  - ABDOMINAL PAIN [None]
  - DISEASE PROGRESSION [None]
